FAERS Safety Report 6582945-X (Version None)
Quarter: 2010Q1

REPORT INFORMATION
  Report Type: 
  Country: None (occurrence: None)
  Receive Date: 20100216
  Receipt Date: 20100210
  Transmission Date: 20100710
  Serious: Yes (Other)
  Sender: FDA-Public Use
  Company Number: FR-BRISTOL-MYERS SQUIBB COMPANY-14928105

PATIENT
  Age: 56 Year
  Sex: Female

DRUGS (10)
  1. ABILIFY [Suspect]
     Indication: PSYCHOTIC DISORDER
  2. CORDARONE [Concomitant]
     Indication: PALPITATIONS
  3. PREVISCAN [Concomitant]
  4. APROVEL [Concomitant]
  5. FLUDEX [Concomitant]
     Dosage: 1 DOSAGE FORM = 1.5 TAB/D. FLUDEX SR.
  6. EUPRESSYL [Concomitant]
     Dosage: EUPRESSYL 60 MG. 2 DOSAGE FORM = 2 TABS/DAY
  7. NEBILOX [Concomitant]
  8. METFORMIN HCL [Concomitant]
  9. AMAREL [Concomitant]
  10. FRACTAL [Concomitant]
     Dosage: FRACTAL SR.

REACTIONS (2)
  - ATRIAL FIBRILLATION [None]
  - MUSCLE SPASMS [None]
